FAERS Safety Report 6246443-5 (Version None)
Quarter: 2009Q2

REPORT INFORMATION
  Report Type: 
  Country: None (occurrence: None)
  Receive Date: 20090624
  Receipt Date: 20090624
  Transmission Date: 20091009
  Serious: No
  Sender: FDA-Public Use
  Company Number: None

PATIENT
  Age: 34 Year
  Sex: Male
  Weight: 93.8946 kg

DRUGS (1)
  1. ZYPREXA [Suspect]
     Indication: SCHIZOPHRENIA
     Dosage: 15MG ONCE NIGHTLY PO
     Route: 048
     Dates: start: 19990601, end: 20090618

REACTIONS (4)
  - ABNORMAL DREAMS [None]
  - BLEPHAROSPASM [None]
  - INITIAL INSOMNIA [None]
  - PAIN [None]
